FAERS Safety Report 9227440 (Version 1)
Quarter: 2013Q1

REPORT INFORMATION
  Report Type: Spontaneous
  Country: US (occurrence: None)
  Receive Date: 20121004
  Receipt Date: 20121004
  Transmission Date: 20140127
  Serious: Yes (Other)
  Sender: FDA-Public Use
  Company Number: PHEH2011US011493

PATIENT
  Age: 55 Year
  Sex: Female

DRUGS (2)
  1. ESTRADIOL AND NORETHINDRONE ACETATE [Suspect]
     Route: 062
  2. FISH OIL (FISH OIL) [Concomitant]

REACTIONS (5)
  - Wrong technique in drug usage process [None]
  - Dizziness [None]
  - Nausea [None]
  - Frustration [None]
  - Vaginal haemorrhage [None]
